FAERS Safety Report 10383064 (Version 1)
Quarter: 2014Q3

REPORT INFORMATION
  Report Type: Spontaneous
  Country: US (occurrence: US)
  Receive Date: 20140813
  Receipt Date: 20140813
  Transmission Date: 20150326
  Serious: Yes (Hospitalization)
  Sender: FDA-Public Use
  Company Number: US-SANOFI-AVENTIS-FABR-1002730

PATIENT
  Age: 51 Year
  Sex: Male
  Weight: 61 kg

DRUGS (28)
  1. PROVENTIL [Concomitant]
     Active Substance: ALBUTEROL
  2. METOCLOPRAMIDE. [Concomitant]
     Active Substance: METOCLOPRAMIDE
  3. OXYCONTIN [Concomitant]
     Active Substance: OXYCODONE HYDROCHLORIDE
  4. DOCUSATE SODIUM. [Concomitant]
     Active Substance: DOCUSATE SODIUM
  5. CALCITRIOL. [Concomitant]
     Active Substance: CALCITRIOL
  6. SANDIMMUNE [Concomitant]
     Active Substance: CYCLOSPORINE
  7. LAMICTAL [Concomitant]
     Active Substance: LAMOTRIGINE
  8. NEBIVOLOL [Concomitant]
     Active Substance: NEBIVOLOL
  9. LEXAPRO [Concomitant]
     Active Substance: ESCITALOPRAM OXALATE
  10. DIAZEPAM. [Concomitant]
     Active Substance: DIAZEPAM
  11. FABRAZYME [Suspect]
     Active Substance: AGALSIDASE BETA
     Indication: FABRY^S DISEASE
     Dosage: 70 MG
     Route: 042
     Dates: start: 20031113
  12. XANAX [Concomitant]
     Active Substance: ALPRAZOLAM
  13. SALINE [Concomitant]
     Active Substance: SODIUM CHLORIDE
  14. ZOFRAN [Concomitant]
     Active Substance: ONDANSETRON HYDROCHLORIDE
  15. CLONIDINE. [Concomitant]
     Active Substance: CLONIDINE
  16. TERAZOSIN [Concomitant]
     Active Substance: TERAZOSIN\TERAZOSIN HYDROCHLORIDE
  17. KLOR-CON [Concomitant]
     Active Substance: POTASSIUM CHLORIDE
  18. BUMETANIDE. [Concomitant]
     Active Substance: BUMETANIDE
  19. TRIMETHOBENZAMIDE [Concomitant]
     Active Substance: TRIMETHOBENZAMIDE
  20. ZYPREXA [Concomitant]
     Active Substance: OLANZAPINE
  21. ENALAPRIL MALEATE. [Concomitant]
     Active Substance: ENALAPRIL MALEATE
  22. ASMANEX [Concomitant]
     Active Substance: MOMETASONE FUROATE
  23. HYDRALAZINE [Concomitant]
     Active Substance: HYDRALAZINE HYDROCHLORIDE
  24. PERCOCET [Concomitant]
     Active Substance: ACETAMINOPHEN\OXYCODONE HYDROCHLORIDE
  25. PLAVIX [Concomitant]
     Active Substance: CLOPIDOGREL BISULFATE
  26. FENTANYL. [Concomitant]
     Active Substance: FENTANYL
  27. ASPIRIN. [Concomitant]
     Active Substance: ASPIRIN
  28. PREDNISONE. [Concomitant]
     Active Substance: PREDNISONE

REACTIONS (1)
  - Chest pain [Recovered/Resolved]

NARRATIVE: CASE EVENT DATE: 20120904
